FAERS Safety Report 14796168 (Version 2)
Quarter: 2019Q2

REPORT INFORMATION
  Report Type: Spontaneous
  Country: US (occurrence: US)
  Receive Date: 20180423
  Receipt Date: 20190415
  Transmission Date: 20190711
  Serious: No
  Sender: FDA-Public Use
  Company Number: US-TEVA-2018-US-885426

PATIENT
  Sex: Female

DRUGS (1)
  1. LORAZEPAM. [Suspect]
     Active Substance: LORAZEPAM
     Route: 065

REACTIONS (5)
  - Drug ineffective [Unknown]
  - Sluggishness [Unknown]
  - Vision blurred [Unknown]
  - Somnolence [Unknown]
  - Palpitations [Unknown]
